FAERS Safety Report 8895680 (Version 2)
Quarter: 2012Q4

REPORT INFORMATION
  Report Type: 
  Country: JP (occurrence: JP)
  Receive Date: 20121108
  Receipt Date: 20121128
  Transmission Date: 20130627
  Serious: Yes (Death, Other)
  Sender: FDA-Public Use
  Company Number: JP-ROCHE-1151460

PATIENT
  Age: 84 Year
  Sex: Male

DRUGS (2)
  1. ALTEPLASE [Suspect]
     Indication: CEREBRAL ARTERY EMBOLISM
     Route: 042
  2. EDARAVONE [Suspect]
     Indication: PRODUCT USED FOR UNKNOWN INDICATION
     Route: 051

REACTIONS (5)
  - Pneumonia aspiration [Fatal]
  - Necrosis [Unknown]
  - Brain oedema [Unknown]
  - Haemorrhagic transformation stroke [Unknown]
  - Drug effect decreased [Unknown]
